FAERS Safety Report 4393739-8 (Version None)
Quarter: 2004Q3

REPORT INFORMATION
  Report Type: 
  Country: None (occurrence: None)
  Receive Date: 20040709
  Receipt Date: 20040622
  Transmission Date: 20050211
  Serious: Yes (Death, Life-Threatening)
  Sender: FDA-Public Use
  Company Number: NL-GLAXOSMITHKLINE-B0337221A

PATIENT
  Age: 82 Year
  Sex: Female

DRUGS (20)
  1. ACYCLOVIR [Suspect]
     Dosage: 200MG TWICE PER DAY
     Route: 042
     Dates: start: 20040223, end: 20040302
  2. MOVICOLON [Concomitant]
     Indication: DRUG USE FOR UNKNOWN INDICATION
     Dosage: 1UNIT TWICE PER DAY
     Dates: start: 20040220
  3. ACETAMINOPHEN [Concomitant]
     Indication: DRUG USE FOR UNKNOWN INDICATION
     Dosage: 1000MG VARIABLE DOSE
  4. PANTOZOL [Concomitant]
     Indication: DRUG USE FOR UNKNOWN INDICATION
     Dosage: 40MG PER DAY
  5. HYDROCORTISON [Concomitant]
     Indication: DRUG USE FOR UNKNOWN INDICATION
     Dosage: 100MG THREE TIMES PER DAY
  6. COMBIVENT [Concomitant]
     Indication: DRUG USE FOR UNKNOWN INDICATION
     Dosage: 1UNIT FOUR TIMES PER DAY
     Route: 055
  7. MAGNESIUM SULFATE [Concomitant]
     Indication: DRUG USE FOR UNKNOWN INDICATION
     Dosage: 1UNIT PER DAY
  8. THIAMINE [Concomitant]
     Indication: DRUG USE FOR UNKNOWN INDICATION
     Dosage: 100MG PER DAY
  9. CERNEVIT-12 [Concomitant]
     Indication: DRUG USE FOR UNKNOWN INDICATION
     Dosage: 1UNIT PER DAY
  10. UNSPECIFIED HOMEOPATHIC DRUGS [Concomitant]
     Indication: DRUG USE FOR UNKNOWN INDICATION
  11. TOBRAMYCIN [Concomitant]
     Indication: DRUG USE FOR UNKNOWN INDICATION
     Dosage: 300MG AS DIRECTED
  12. CIPROXIN [Concomitant]
     Indication: DRUG USE FOR UNKNOWN INDICATION
     Dosage: 200MG TWICE PER DAY
  13. AUGMENTIN [Concomitant]
     Indication: DRUG USE FOR UNKNOWN INDICATION
     Dosage: 1100MG TWICE PER DAY
  14. AMOXICILLIN [Concomitant]
     Indication: DRUG USE FOR UNKNOWN INDICATION
     Dosage: 1000MG TWICE PER DAY
  15. HEPARIN [Concomitant]
     Indication: DRUG USE FOR UNKNOWN INDICATION
  16. KALIUMCHLORIDE [Concomitant]
     Indication: DRUG USE FOR UNKNOWN INDICATION
  17. DOBUTAMINE [Concomitant]
     Indication: DRUG USE FOR UNKNOWN INDICATION
  18. NORADRENALINE [Concomitant]
     Indication: DRUG USE FOR UNKNOWN INDICATION
  19. FENTANYL [Concomitant]
     Indication: DRUG USE FOR UNKNOWN INDICATION
  20. INSULIN [Concomitant]
     Indication: DRUG USE FOR UNKNOWN INDICATION

REACTIONS (5)
  - ACUTE RESPIRATORY DISTRESS SYNDROME [None]
  - BRADYCARDIA [None]
  - CARDIAC ARREST [None]
  - DEATH [None]
  - MYOCARDIAL INFARCTION [None]
